FAERS Safety Report 16388482 (Version 1)
Quarter: 2019Q3

REPORT INFORMATION
  Report Type: Spontaneous
  Country: US (occurrence: US)
  Receive Date: 20190601
  Receipt Date: 20190601
  Transmission Date: 20191004
  Serious: No
  Sender: FDA-Public Use
  Company Number: None

PATIENT
  Age: 61 Year
  Sex: Female
  Weight: 85.5 kg

DRUGS (3)
  1. RANITIDINE 150 MG [Concomitant]
     Active Substance: RANITIDINE
     Dates: start: 20190108
  2. ZYRTEC [Suspect]
     Active Substance: CETIRIZINE HYDROCHLORIDE
     Indication: RHINITIS ALLERGIC
     Route: 048
     Dates: start: 20190527, end: 20190529
  3. SYMBICORT [Concomitant]
     Active Substance: BUDESONIDE\FORMOTEROL FUMARATE DIHYDRATE
     Dates: start: 20171106

REACTIONS (4)
  - Pyrexia [None]
  - Chills [None]
  - Productive cough [None]
  - Abnormal dreams [None]

NARRATIVE: CASE EVENT DATE: 20190529
